FAERS Safety Report 5031135-0 (Version None)
Quarter: 2006Q2

REPORT INFORMATION
  Report Type: 
  Country: None (occurrence: None)
  Receive Date: 20060619
  Receipt Date: 20060619
  Transmission Date: 20061013
  Serious: Yes (Disabling)
  Sender: FDA-Public Use
  Company Number: None

PATIENT
  Age: 25 Year
  Sex: Female

DRUGS (1)
  1. PENICILLIN G POTASSIUM [Suspect]
     Indication: INFECTION PROPHYLAXIS
     Dosage: 3 MILLION UNITS EVERY 4 HOURS IV
     Route: 042
     Dates: start: 20060607, end: 20060608

REACTIONS (1)
  - INJECTION SITE IRRITATION [None]
